FAERS Safety Report 10514132 (Version 3)
Quarter: 2015Q1

REPORT INFORMATION
  Report Type: Spontaneous
  Country: US (occurrence: US)
  Receive Date: 20141013
  Receipt Date: 20150121
  Transmission Date: 20150720
  Serious: Yes (Other)
  Sender: FDA-Public Use
  Company Number: US-BAYER-2014-140958

PATIENT
  Age: 76 Year
  Sex: Male

DRUGS (5)
  1. XTANDI [Suspect]
     Active Substance: ENZALUTAMIDE
     Indication: PROSTATE CANCER METASTATIC
     Dosage: 160 MG, QD
     Dates: start: 20140524
  2. NORVASC [Concomitant]
     Active Substance: AMLODIPINE BESYLATE
  3. TRENTAL [Concomitant]
     Active Substance: PENTOXIFYLLINE
  4. LOSARTAN [Concomitant]
     Active Substance: LOSARTAN
  5. XOFIGO [Suspect]
     Active Substance: RADIUM RA-223 DICHLORIDE
     Dosage: UNK
     Route: 042

REACTIONS (5)
  - Nausea [Recovering/Resolving]
  - Gastrointestinal disorder [None]
  - Gastrointestinal haemorrhage [None]
  - Tremor [None]
  - Anxiety [None]

NARRATIVE: CASE EVENT DATE: 201407
